FAERS Safety Report 5520175-0 (Version None)
Quarter: 2007Q4

REPORT INFORMATION
  Report Type: 
  Country: None (occurrence: None)
  Receive Date: 20071116
  Receipt Date: 20071023
  Transmission Date: 20080405
  Serious: No
  Sender: FDA-Public Use
  Company Number: US-BOEHRINGER INGELHEIM PHARMACEUTICALS, INC.-2007-BP-23249BP

PATIENT
  Age: 79 Year
  Sex: Male

DRUGS (5)
  1. FLOMAX [Suspect]
     Indication: BENIGN PROSTATIC HYPERPLASIA
     Route: 048
     Dates: start: 20071019, end: 20071021
  2. PROSCAR [Concomitant]
  3. B/P MED [Concomitant]
  4. AGGRENOX [Concomitant]
  5. PREVACID [Concomitant]

REACTIONS (4)
  - BLOOD PRESSURE DECREASED [None]
  - DIZZINESS POSTURAL [None]
  - FREQUENT BOWEL MOVEMENTS [None]
  - INSOMNIA [None]
